FAERS Safety Report 6490182-2 (Version None)
Quarter: 2009Q4

REPORT INFORMATION
  Report Type: 
  Country: None (occurrence: None)
  Receive Date: 20091211
  Receipt Date: 20091028
  Transmission Date: 20100525
  Serious: No
  Sender: FDA-Public Use
  Company Number: A0813187A

PATIENT
  Age: 58 Year
  Sex: Male

DRUGS (10)
  1. FLUTICASONE PROPIONATE [Suspect]
     Dosage: 2SPR PER DAY
     Route: 045
     Dates: start: 20090907
  2. CARVEDILOL [Concomitant]
  3. HYDRALAZINE HCL [Concomitant]
  4. AMLODIPINE [Concomitant]
  5. ISOSORBIDE MONONITRATE [Concomitant]
  6. ASPIRIN [Concomitant]
  7. FUROSEMIDE [Concomitant]
  8. POTASSIUM [Concomitant]
  9. UNKNOWN MEDICATION [Concomitant]
  10. PRAVASTATIN [Concomitant]

REACTIONS (3)
  - AGEUSIA [None]
  - PRODUCT QUALITY ISSUE [None]
  - WEIGHT DECREASED [None]
